FAERS Safety Report 7264923-0 (Version None)
Quarter: 2011Q1

REPORT INFORMATION
  Report Type: 
  Country: None (occurrence: None)
  Receive Date: 20110131
  Receipt Date: 20101123
  Transmission Date: 20110831
  Serious: Yes (Hospitalization, Other)
  Sender: FDA-Public Use
  Company Number: US-BAYER-201038305NA

PATIENT
  Sex: Female
  Weight: 126.98 kg

DRUGS (6)
  1. YAZ [Suspect]
  2. OCELLA [Suspect]
  3. ADVIL [Concomitant]
  4. ZANTAC [Concomitant]
     Indication: REFLUX OESOPHAGITIS
  5. YASMIN [Suspect]
     Indication: ACNE
     Dosage: UNK
     Dates: start: 20021229, end: 20030101
  6. LISINOPRIL AND HYDROCHLOROTHIAZIDE [Concomitant]
     Indication: BLOOD PRESSURE MANAGEMENT
     Dosage: UNK
     Dates: start: 20021201

REACTIONS (1)
  - DEEP VEIN THROMBOSIS [None]
